FAERS Safety Report 9079882 (Version 1)
Quarter: 2013Q1

REPORT INFORMATION
  Report Type: Spontaneous
  Country: US (occurrence: US)
  Receive Date: 20130130
  Receipt Date: 20130130
  Transmission Date: 20140127
  Serious: No
  Sender: FDA-Public Use
  Company Number: US-ABBOTT-12P-163-0974479-00

PATIENT
  Sex: Female

DRUGS (1)
  1. HUMIRA 40 MG/0.8 ML PEN [Suspect]
     Indication: SARCOIDOSIS
     Route: 058
     Dates: start: 201111

REACTIONS (2)
  - Off label use [Unknown]
  - Sarcoidosis [Unknown]
